FAERS Safety Report 5050517-4 (Version None)
Quarter: 2006Q3

REPORT INFORMATION
  Report Type: 
  Country: None (occurrence: None)
  Receive Date: 20060707
  Receipt Date: 20060620
  Transmission Date: 20061208
  Serious: Yes (Life-Threatening)
  Sender: FDA-Public Use
  Company Number: S06-FRA-02186-01

PATIENT
  Age: 68 Year
  Sex: Male

DRUGS (11)
  1. SEROPLEX (ESCITALOPRAM) [Suspect]
     Indication: DEPRESSION
     Dosage: 10 MG QD PO
     Route: 048
     Dates: start: 20060503, end: 20060511
  2. GAVISCON [Concomitant]
  3. PSEUDOPHAGE [Concomitant]
  4. IPERTEN (MANIDIPINE HYDROCHLORIDE) [Concomitant]
  5. SERETIDE [Concomitant]
  6. FUROSEMIDE [Concomitant]
  7. FOZITEC (FOSINOPRIL) [Concomitant]
  8. HYPERIUM (RILMENIDINE) [Concomitant]
  9. PANTOPRAZOLE SODIUM [Concomitant]
  10. XALATAN [Concomitant]
  11. PERMIXON (SERENOA REPENS) [Concomitant]

REACTIONS (4)
  - BLOOD CHLORIDE DECREASED [None]
  - GENERALISED OEDEMA [None]
  - HYPONATRAEMIA [None]
  - WEIGHT INCREASED [None]
